FAERS Safety Report 5169346-6 (Version None)
Quarter: 2006Q4

REPORT INFORMATION
  Report Type: 
  Country: None (occurrence: None)
  Receive Date: 20061201
  Receipt Date: 20061123
  Transmission Date: 20070319
  Serious: Yes (Death)
  Sender: FDA-Public Use
  Company Number: CAWYE430206NOV06

PATIENT

DRUGS (1)
  1. EFFEXOR XR [Suspect]

REACTIONS (1)
  - VICTIM OF HOMICIDE [None]
